FAERS Safety Report 23851247 (Version 1)
Quarter: 2024Q2

REPORT INFORMATION
  Report Type: Other
  Country: US (occurrence: None)
  Receive Date: 20240514
  Receipt Date: 20240514
  Transmission Date: 20240715
  Serious: Yes (Other)
  Sender: FDA-Public Use
  Company Number: US-ROCHE-3560522

PATIENT
  Age: 61 Year
  Sex: Female

DRUGS (39)
  1. TECENTRIQ [Suspect]
     Active Substance: ATEZOLIZUMAB
     Indication: Lung neoplasm malignant
     Route: 041
  2. TRULICITY [Concomitant]
     Active Substance: DULAGLUTIDE
  3. IBUPROFEN [Concomitant]
     Active Substance: IBUPROFEN
  4. ONDANSETRON [Concomitant]
     Active Substance: ONDANSETRON
  5. POLYETHYLENE GLYCOL [Concomitant]
     Active Substance: POLYETHYLENE GLYCOL
  6. DOCUSET [Concomitant]
  7. FISH OIL [Concomitant]
     Active Substance: FISH OIL
  8. MAGNESIUM [Concomitant]
     Active Substance: MAGNESIUM
  9. CALCIUM CARBONATE [Concomitant]
     Active Substance: CALCIUM CARBONATE
  10. SPIRONOLACTONE [Concomitant]
     Active Substance: SPIRONOLACTONE
  11. LANSOPRAZOLE [Concomitant]
     Active Substance: LANSOPRAZOLE
  12. PREDNISONE [Concomitant]
     Active Substance: PREDNISONE
  13. DAPAGLIFLOZIN [Concomitant]
     Active Substance: DAPAGLIFLOZIN
  14. SENOKOT [Concomitant]
     Active Substance: SENNOSIDES
  15. LISINOPRIL [Concomitant]
     Active Substance: LISINOPRIL
  16. SOTALOL [Concomitant]
     Active Substance: SOTALOL
  17. MONTELUKAST [Concomitant]
     Active Substance: MONTELUKAST SODIUM
  18. CETIRIZINE HYDROCHLORIDE [Concomitant]
     Active Substance: CETIRIZINE HYDROCHLORIDE
  19. BACLOFEN [Concomitant]
     Active Substance: BACLOFEN
  20. PROAIR HFA [Concomitant]
     Active Substance: ALBUTEROL SULFATE
  21. LIDOCAINE [Concomitant]
     Active Substance: LIDOCAINE
  22. BUPROPION [Concomitant]
     Active Substance: BUPROPION
  23. DOXYCYCLINE [Concomitant]
     Active Substance: DOXYCYCLINE
  24. METFORMIN [Concomitant]
     Active Substance: METFORMIN HYDROCHLORIDE
  25. FLUTICASONE [Concomitant]
     Active Substance: FLUTICASONE
  26. ROPINIROLE [Concomitant]
     Active Substance: ROPINIROLE
  27. APIXABAN [Concomitant]
     Active Substance: APIXABAN
  28. GABAPENTIN [Concomitant]
     Active Substance: GABAPENTIN
  29. LEVOTHYROXINE [Concomitant]
     Active Substance: LEVOTHYROXINE\LEVOTHYROXINE SODIUM
  30. FUROSEMIDE [Concomitant]
     Active Substance: FUROSEMIDE
  31. LIDOCAINE [Concomitant]
     Active Substance: LIDOCAINE
  32. POTASSIUM CHLORIDE [Concomitant]
     Active Substance: POTASSIUM CHLORIDE
  33. ROSUVASTATIN [Concomitant]
     Active Substance: ROSUVASTATIN
  34. CYANOCOBALAMIN [Concomitant]
     Active Substance: CYANOCOBALAMIN
  35. CICLOPIROX [Concomitant]
     Active Substance: CICLOPIROX\TOCOPHEROL
  36. GUAIFENESIN [Concomitant]
     Active Substance: GUAIFENESIN
  37. CHOLECALCIFEROL [Concomitant]
     Active Substance: CHOLECALCIFEROL
  38. ETOPOSIDE [Concomitant]
     Active Substance: ETOPOSIDE
  39. CARBOPLATIN [Concomitant]
     Active Substance: CARBOPLATIN

REACTIONS (18)
  - Sepsis [Unknown]
  - Atrial fibrillation [Unknown]
  - Orthostatic hypotension [Unknown]
  - Pyrexia [Unknown]
  - Chronic obstructive pulmonary disease [Unknown]
  - Type 2 diabetes mellitus [Unknown]
  - Anaemia [Unknown]
  - Acute kidney injury [Unknown]
  - Aortic valve disease [Unknown]
  - Obstructive sleep apnoea syndrome [Unknown]
  - Vitamin D deficiency [Unknown]
  - Essential hypertension [Unknown]
  - Obesity [Unknown]
  - Neutrophilia [Unknown]
  - Spinal osteoarthritis [Unknown]
  - Lumbar spinal stenosis [Unknown]
  - Spinal claudication [Unknown]
  - Pancytopenia [Unknown]
